FAERS Safety Report 20475322 (Version 2)
Quarter: 2022Q1

REPORT INFORMATION
  Report Type: Report from Study
  Country: US (occurrence: US)
  Receive Date: 20220215
  Receipt Date: 20220329
  Transmission Date: 20220423
  Serious: Yes (Hospitalization, Other)
  Sender: FDA-Public Use
  Company Number: US-BoehringerIngelheim-2022-BI-152714

PATIENT
  Sex: Male

DRUGS (1)
  1. OFEV [Suspect]
     Active Substance: NINTEDANIB
     Indication: Pulmonary fibrosis
     Route: 048

REACTIONS (7)
  - Diarrhoea [Unknown]
  - Gastric haemorrhage [Unknown]
  - Anaemia [Not Recovered/Not Resolved]
  - Nephropathy [Unknown]
  - Fluid retention [Unknown]
  - Dyspnoea [Not Recovered/Not Resolved]
  - Pleural effusion [Unknown]
